FAERS Safety Report 6273886-6 (Version None)
Quarter: 2009Q3

REPORT INFORMATION
  Report Type: 
  Country: None (occurrence: None)
  Receive Date: 20090716
  Receipt Date: 20090709
  Transmission Date: 20100115
  Serious: Yes (Other)
  Sender: FDA-Public Use
  Company Number: 2007AG0832

PATIENT
  Sex: Male

DRUGS (1)
  1. SIMVASTATIN [Suspect]
     Dosage: 20 MG, ORAL
     Route: 048

REACTIONS (4)
  - CONDITION AGGRAVATED [None]
  - EPILEPSY [None]
  - HEADACHE [None]
  - MYALGIA [None]
